FAERS Safety Report 7536178-0 (Version None)
Quarter: 2011Q2

REPORT INFORMATION
  Report Type: 
  Country: None (occurrence: None)
  Receive Date: 20110608
  Receipt Date: 20110608
  Transmission Date: 20111010
  Serious: Yes (Hospitalization, Other)
  Sender: FDA-Public Use
  Company Number: None

PATIENT
  Age: 93 Year
  Sex: Male

DRUGS (1)
  1. COLISTIN SULFATE [Suspect]
     Indication: CELLULITIS
     Dosage: 200 MG Q12H IV
     Route: 042
     Dates: start: 20110227, end: 20110303

REACTIONS (5)
  - ACIDOSIS [None]
  - BLOOD CREATINE INCREASED [None]
  - HAEMODIALYSIS [None]
  - AZOTAEMIA [None]
  - TUBULOINTERSTITIAL NEPHRITIS [None]
